FAERS Safety Report 14618468 (Version 1)
Quarter: 2018Q1

REPORT INFORMATION
  Report Type: Spontaneous
  Country: JP (occurrence: JP)
  Receive Date: 20180309
  Receipt Date: 20180309
  Transmission Date: 20180509
  Serious: Yes (Death)
  Sender: FDA-Public Use
  Company Number: JP-EISAI MEDICAL RESEARCH-EC-2017-030636

PATIENT
  Age: 66 Year
  Sex: Male

DRUGS (2)
  1. LENVIMA [Suspect]
     Active Substance: LENVATINIB
     Indication: THYROID CANCER
     Route: 048
     Dates: start: 20170619, end: 20170731
  2. LENVIMA [Suspect]
     Active Substance: LENVATINIB
     Route: 048
     Dates: start: 20170801, end: 20180116

REACTIONS (3)
  - Malignant neoplasm progression [Fatal]
  - Palmar-plantar erythrodysaesthesia syndrome [Recovering/Resolving]
  - Stomatitis [Unknown]

NARRATIVE: CASE EVENT DATE: 20170623
